FAERS Safety Report 4812605-4 (Version None)
Quarter: 2005Q4

REPORT INFORMATION
  Report Type: 
  Country: None (occurrence: None)
  Receive Date: 20051028
  Receipt Date: 20041102
  Transmission Date: 20060501
  Serious: No
  Sender: FDA-Public Use
  Company Number: US-GLAXOSMITHKLINE-A0532220A

PATIENT
  Age: 94 Year
  Sex: Female

DRUGS (4)
  1. ADVAIR DISKUS 100/50 [Suspect]
     Indication: ASTHMA
     Dosage: 1PUFF PER DAY
     Route: 055
  2. XOPENEX [Concomitant]
     Route: 065
  3. ACCOLATE [Concomitant]
  4. HUMIBID [Concomitant]

REACTIONS (1)
  - LARYNGITIS [None]
